FAERS Safety Report 13840621 (Version 1)
Quarter: 2017Q3

REPORT INFORMATION
  Report Type: Report from Study
  Country: US (occurrence: US)
  Receive Date: 20170807
  Receipt Date: 20170807
  Transmission Date: 20171127
  Serious: Yes (Other)
  Sender: FDA-Public Use
  Company Number: US-VIFOR (INTERNATIONAL) INC.-VIT-2017-08170

PATIENT
  Age: 68 Year
  Sex: Female

DRUGS (10)
  1. COLECALCIFEROL [Concomitant]
     Active Substance: CHOLECALCIFEROL
  2. ASPIRIN LOW DOSE [Concomitant]
     Active Substance: ASPIRIN
  3. COMBIGAN [Concomitant]
     Active Substance: BRIMONIDINE TARTRATE\TIMOLOL MALEATE
  4. DEMADEX [Concomitant]
     Active Substance: TORSEMIDE
  5. VELTASSA [Suspect]
     Active Substance: PATIROMER
     Indication: HYPERKALAEMIA
     Route: 048
     Dates: start: 20170622, end: 20170722
  6. ZYLOPRIM [Concomitant]
     Active Substance: ALLOPURINOL
  7. LUMIGAN [Concomitant]
     Active Substance: BIMATOPROST
  8. SODIUM BICARBONATE. [Concomitant]
     Active Substance: SODIUM BICARBONATE
  9. ZEMPLAR [Concomitant]
     Active Substance: PARICALCITOL
  10. LIPITOR [Concomitant]
     Active Substance: ATORVASTATIN CALCIUM

REACTIONS (5)
  - Blood pressure decreased [Unknown]
  - Gastrointestinal haemorrhage [Unknown]
  - Dyspepsia [Unknown]
  - Pruritus [Unknown]
  - Heart rate increased [Unknown]

NARRATIVE: CASE EVENT DATE: 201707
